FAERS Safety Report 9701802 (Version 1)
Quarter: 2013Q4

REPORT INFORMATION
  Report Type: Spontaneous
  Country: US (occurrence: US)
  Receive Date: 20131121
  Receipt Date: 20131121
  Transmission Date: 20140711
  Serious: No
  Sender: FDA-Public Use
  Company Number: US-PFIZER INC-2013330306

PATIENT
  Sex: Female

DRUGS (1)
  1. CLINDAMYCIN PHOSPHATE [Suspect]
     Dosage: UNK
     Route: 048
     Dates: start: 201308

REACTIONS (3)
  - Incorrect route of drug administration [Unknown]
  - Infection [Unknown]
  - Skin odour abnormal [Unknown]
